FAERS Safety Report 5641310-X (Version None)
Quarter: 2008Q1

REPORT INFORMATION
  Report Type: 
  Country: None (occurrence: None)
  Receive Date: 20080227
  Receipt Date: 20070515
  Transmission Date: 20080703
  Serious: No
  Sender: FDA-Public Use
  Company Number: A0651179A

PATIENT
  Age: 65 Year

DRUGS (1)
  1. NICORETTE [Suspect]
     Dates: end: 20070511

REACTIONS (1)
  - DIARRHOEA [None]
